FAERS Safety Report 18235158 (Version 1)
Quarter: 2020Q3

REPORT INFORMATION
  Report Type: Spontaneous
  Country: US (occurrence: US)
  Receive Date: 20200904
  Receipt Date: 20200904
  Transmission Date: 20201103
  Serious: No
  Sender: FDA-Public Use
  Company Number: US-KOWA-19US003715

PATIENT

DRUGS (7)
  1. LIVALO [Suspect]
     Active Substance: PITAVASTATIN CALCIUM
     Dosage: 2 UNK
     Dates: start: 20190917, end: 201912
  2. METFORMIN [Concomitant]
     Active Substance: METFORMIN HYDROCHLORIDE
     Indication: TYPE 2 DIABETES MELLITUS
     Dosage: 1000 MG, BID
  3. LIVALO [Suspect]
     Active Substance: PITAVASTATIN CALCIUM
     Indication: PRODUCT USED FOR UNKNOWN INDICATION
     Dosage: 2 MG, QD
     Dates: start: 20190817
  4. ALLEGRA?D [Concomitant]
     Active Substance: FEXOFENADINE\PSEUDOEPHEDRINE
     Indication: PRODUCT USED FOR UNKNOWN INDICATION
     Dosage: UNK
  5. LIVALO [Suspect]
     Active Substance: PITAVASTATIN CALCIUM
     Dosage: 2 UNK
     Dates: start: 201912
  6. NORFLEX [Concomitant]
     Active Substance: ORPHENADRINE CITRATE
     Indication: MUSCLE SPASMS
     Dosage: UNK
     Dates: start: 201909
  7. COENZYME Q10 [Concomitant]
     Active Substance: DIETARY SUPPLEMENT\UBIDECARENONE
     Indication: PRODUCT USED FOR UNKNOWN INDICATION
     Dosage: UNK

REACTIONS (3)
  - Pain in extremity [Not Recovered/Not Resolved]
  - Intentional product misuse [Unknown]
  - Muscle spasms [Not Recovered/Not Resolved]

NARRATIVE: CASE EVENT DATE: 20190915
